FAERS Safety Report 6069580-7 (Version None)
Quarter: 2009Q1

REPORT INFORMATION
  Report Type: 
  Country: None (occurrence: None)
  Receive Date: 20090206
  Receipt Date: 20090123
  Transmission Date: 20090719
  Serious: Yes (Hospitalization)
  Sender: FDA-Public Use
  Company Number: IT-CELGENEUS-083-C5013-09011294

PATIENT
  Sex: Female
  Weight: 70 kg

DRUGS (13)
  1. CC-5013 [Suspect]
     Indication: MULTIPLE MYELOMA
     Route: 048
     Dates: start: 20090102, end: 20090121
  2. DEXAMETHASONE TAB [Suspect]
     Indication: MULTIPLE MYELOMA
     Route: 065
     Dates: start: 20090102, end: 20090123
  3. DEXAMETHASONE TAB [Suspect]
     Route: 051
     Dates: start: 20090131
  4. ZOMETA [Concomitant]
     Indication: BONE LESION
     Route: 051
     Dates: start: 20081224
  5. TRAMADOL HCL [Concomitant]
     Indication: BONE PAIN
     Route: 048
     Dates: start: 20090107, end: 20090202
  6. ALBUMIN (HUMAN) [Concomitant]
     Dosage: 50ML BD
     Route: 051
     Dates: start: 20090122
  7. LMWH [Concomitant]
     Indication: PROPHYLAXIS
     Route: 051
     Dates: start: 20090128, end: 20090202
  8. POTASSIUM CHLORIDE [Concomitant]
     Route: 051
     Dates: start: 20090128, end: 20090129
  9. CALCIUM GLUCONATE [Concomitant]
     Indication: PROPHYLAXIS
     Route: 051
     Dates: start: 20090130, end: 20090202
  10. TORADOL [Concomitant]
     Indication: BONE PAIN
     Route: 060
     Dates: start: 20081218
  11. RED BLOOD CELLS [Concomitant]
     Indication: ANAEMIA
     Route: 051
     Dates: start: 20090128, end: 20090128
  12. RED BLOOD CELLS [Concomitant]
     Route: 051
     Dates: start: 20090130, end: 20090130
  13. CLINIMIX [Concomitant]
     Indication: PARENTERAL NUTRITION
     Route: 051
     Dates: start: 20090121

REACTIONS (2)
  - PYREXIA [None]
  - TOXIC EPIDERMAL NECROLYSIS [None]
